FAERS Safety Report 6554707-0 (Version None)
Quarter: 2010Q1

REPORT INFORMATION
  Report Type: 
  Country: None (occurrence: None)
  Receive Date: 20100127
  Receipt Date: 20100118
  Transmission Date: 20100710
  Serious: Yes (Hospitalization)
  Sender: FDA-Public Use
  Company Number: US-JNJFOC-20100108214

PATIENT
  Sex: Female
  Weight: 107.96 kg

DRUGS (2)
  1. DURAGESIC-100 [Suspect]
     Indication: ARTHRALGIA
     Route: 062
  2. DURAGESIC-100 [Suspect]
     Route: 062

REACTIONS (8)
  - APPLICATION SITE REACTION [None]
  - BACTERIAL INFECTION [None]
  - FALL [None]
  - HYPERTENSION [None]
  - MYASTHENIA GRAVIS [None]
  - NAUSEA [None]
  - PRODUCT QUALITY ISSUE [None]
  - WEIGHT DECREASED [None]
